FAERS Safety Report 5659158-9 (Version None)
Quarter: 2008Q1

REPORT INFORMATION
  Report Type: 
  Country: None (occurrence: None)
  Receive Date: 20080311
  Receipt Date: 20070525
  Transmission Date: 20080703
  Serious: No
  Sender: FDA-Public Use
  Company Number: US-BAYER-200711710BCC

PATIENT
  Age: 75 Year
  Sex: Male
  Weight: 81 kg

DRUGS (3)
  1. ALEVE [Suspect]
     Indication: ARTHRITIS
     Dosage: UNIT DOSE: 220 MG
     Route: 048
     Dates: start: 20061201, end: 20070525
  2. LISINOPRIL [Concomitant]
  3. GLIPIZIDE [Concomitant]

REACTIONS (1)
  - BLOOD PRESSURE INCREASED [None]
